FAERS Safety Report 9704031 (Version 3)
Quarter: 2014Q2

REPORT INFORMATION
  Report Type: Spontaneous
  Country: JP (occurrence: JP)
  Receive Date: 20131122
  Receipt Date: 20140609
  Transmission Date: 20141212
  Serious: Yes (Death, Hospitalization)
  Sender: FDA-Public Use
  Company Number: JP-UCBSA-103814

PATIENT
  Age: 75 Year
  Sex: Male
  Weight: 63 kg

DRUGS (10)
  1. E KEPPRA [Suspect]
     Indication: TREMOR
     Dosage: 500 MG, 2X/DAY (BID)
     Route: 048
     Dates: start: 20130914, end: 20130916
  2. PLAVIX [Concomitant]
     Indication: MYOCARDIAL INFARCTION
     Dosage: DAILY DOSE: 75MG
     Route: 048
     Dates: start: 20130906
  3. TENORMIN [Concomitant]
     Indication: HYPERTENSION
     Dosage: DAILY DOSE: 25MG
     Route: 048
     Dates: start: 20130906
  4. SIGMART [Concomitant]
     Indication: HYPERTENSION
     Dosage: DAILY DOSE: 10MG
     Route: 048
     Dates: start: 20130906
  5. LIPITOR [Concomitant]
     Indication: HYPERLIPIDAEMIA
     Dosage: DAILY DOSE: 10MG
     Route: 048
     Dates: start: 20130906
  6. BLOPRESS [Concomitant]
     Indication: HYPERTENSION
     Dosage: DAILY DOSE: 4MG
     Route: 048
     Dates: start: 20130906
  7. ONON [Concomitant]
     Dosage: DAILY DOSE: 225MG
     Route: 048
     Dates: start: 20130906
  8. URIEF [Concomitant]
     Dosage: DAIL; DOSE: 8MG
     Route: 048
     Dates: start: 20130906
  9. LENDORMIN D [Concomitant]
     Dosage: DAILY DOSE: 0.25MG
     Route: 048
     Dates: start: 20130906
  10. E KEPPRA TABLETS 500MG [Suspect]
     Indication: TREMOR
     Route: 048
     Dates: start: 20130914, end: 20130916

REACTIONS (5)
  - Creutzfeldt-Jakob disease [Fatal]
  - Off label use [None]
  - Loss of consciousness [None]
  - Abasia [None]
  - Disease progression [None]
